FAERS Safety Report 18462973 (Version 9)
Quarter: 2021Q3

REPORT INFORMATION
  Report Type: Report from Study
  Country: US (occurrence: US)
  Receive Date: 20201104
  Receipt Date: 20210826
  Transmission Date: 20211014
  Serious: Yes (Other)
  Sender: FDA-Public Use
  Company Number: US-TAKEDA-US202019760

PATIENT
  Age: 3 Year
  Sex: Male
  Weight: 23.58 kg

DRUGS (19)
  1. IDURSULFASE [Suspect]
     Active Substance: IDURSULFASE
     Indication: MUCOPOLYSACCHARIDOSIS
     Dosage: 12 MILLIGRAM, 1/WEEK
     Route: 042
     Dates: start: 20200422
  2. HEPARIN [Concomitant]
     Active Substance: HEPARIN SODIUM
     Route: 065
  3. SODIUM CHLORIDE. [Concomitant]
     Active Substance: SODIUM CHLORIDE
     Route: 065
  4. DIPHENHYDRAMINE. [Concomitant]
     Active Substance: DIPHENHYDRAMINE
     Route: 065
  5. METHYLPREDNISOLONE ACETATE. [Concomitant]
     Active Substance: METHYLPREDNISOLONE ACETATE
     Route: 065
  6. ACETAMINOPHEN. [Concomitant]
     Active Substance: ACETAMINOPHEN
     Route: 065
  7. EPINEPHRINE. [Concomitant]
     Active Substance: EPINEPHRINE
     Route: 065
  8. MUPIROCIN. [Concomitant]
     Active Substance: MUPIROCIN
     Route: 065
  9. IDURSULFASE [Suspect]
     Active Substance: IDURSULFASE
     Indication: MUCOPOLYSACCHARIDOSIS I
     Dosage: 12 MILLIGRAM, 1/WEEK
     Route: 042
     Dates: start: 20200421
  10. FAMOTIDINE. [Concomitant]
     Active Substance: FAMOTIDINE
     Route: 065
  11. VITAMINS NOS [Concomitant]
     Active Substance: VITAMINS
     Route: 065
  12. IDURSULFASE [Suspect]
     Active Substance: IDURSULFASE
     Dosage: 12 MILLIGRAM, 1/WEEK
     Route: 042
     Dates: start: 20200602
  13. ONDANSETRON [Concomitant]
     Active Substance: ONDANSETRON
     Route: 065
  14. METHYLPREDNISOLONE. [Concomitant]
     Active Substance: METHYLPREDNISOLONE
     Route: 065
  15. IDURSULFASE [Suspect]
     Active Substance: IDURSULFASE
     Dosage: 12 MILLIGRAM, 1/WEEK
     Route: 042
     Dates: start: 20191030
  16. NORMAL SALINE [Concomitant]
     Active Substance: SODIUM CHLORIDE
     Route: 065
  17. IDURSULFASE [Suspect]
     Active Substance: IDURSULFASE
     Dosage: 18 MILLIGRAM, 1/WEEK
     Route: 042
     Dates: start: 20200422
  18. LIDOCAINE. [Concomitant]
     Active Substance: LIDOCAINE
     Route: 065
  19. SOLU?MEDROL [Concomitant]
     Active Substance: METHYLPREDNISOLONE SODIUM SUCCINATE
     Route: 065

REACTIONS (25)
  - Gastroenteritis viral [Unknown]
  - Catheter site pain [Unknown]
  - Illness [Unknown]
  - Rhinorrhoea [Unknown]
  - Rash [Unknown]
  - Headache [Unknown]
  - Miliaria [Not Recovered/Not Resolved]
  - Swelling [Unknown]
  - Fall [Unknown]
  - Joint stiffness [Not Recovered/Not Resolved]
  - Contusion [Unknown]
  - Scar [Unknown]
  - Skin abrasion [Unknown]
  - Dermatitis diaper [Unknown]
  - Vomiting [Unknown]
  - Pyrexia [Unknown]
  - Chest injury [Unknown]
  - Scratch [Unknown]
  - Rash macular [Unknown]
  - Pain [Unknown]
  - Head injury [Unknown]
  - Blood blister [Unknown]
  - Device occlusion [Unknown]
  - Diarrhoea [Not Recovered/Not Resolved]
  - Erythema [Unknown]

NARRATIVE: CASE EVENT DATE: 20200723
